FAERS Safety Report 24773678 (Version 1)
Quarter: 2024Q4

REPORT INFORMATION
  Report Type: Spontaneous
  Country: GB (occurrence: GB)
  Receive Date: 20241225
  Receipt Date: 20241225
  Transmission Date: 20250115
  Serious: Yes (Other)
  Sender: TEVA
  Company Number: GB-MHRA-TPP56608979C4925480YC1734112749364

PATIENT
  Age: 3 Year
  Sex: Female
  Weight: 25 kg

DRUGS (5)
  1. FLUTICASONE [Suspect]
     Active Substance: FLUTICASONE
     Indication: Ill-defined disorder
     Dosage: INHALE 2 DOSES TWICE DAILY VIA MDI AND AEROCHAMBER, FLUTICASONE 50MICROGRAMS/DOSE INHALER CFC FREE
     Route: 055
     Dates: start: 20241122
  2. BECLOMETHASONE DIPROPIONATE [Concomitant]
     Active Substance: BECLOMETHASONE DIPROPIONATE
     Indication: Ill-defined disorder
     Dosage: TWO PUFFS TWICE DAILY
     Route: 065
     Dates: start: 20240531
  3. ALBUTEROL [Concomitant]
     Active Substance: ALBUTEROL
     Indication: Ill-defined disorder
     Dosage: TIME INTERVAL: AS NECESSARY: INHALE 2 DOSES AS NEEDED
     Route: 055
     Dates: start: 20240531
  4. EPIPEN [Concomitant]
     Active Substance: EPINEPHRINE
     Indication: Ill-defined disorder
     Dosage: TO ADMINISTER IN EVENT OF ANAPHYLAXSIS
     Route: 065
     Dates: start: 20230901
  5. CETRABEN [Concomitant]
     Indication: Ill-defined disorder
     Dosage: APPLY AS REGULARLY AS POSSIBLE
     Route: 065
     Dates: start: 20220204

REACTIONS (1)
  - Sleep terror [Recovered/Resolved]
